FAERS Safety Report 17164491 (Version 2)
Quarter: 2020Q4

REPORT INFORMATION
  Report Type: Spontaneous
  Country: US (occurrence: US)
  Receive Date: 20191217
  Receipt Date: 20201210
  Transmission Date: 20210113
  Serious: No
  Sender: FDA-Public Use
  Company Number: US-PFIZER INC-2019542139

PATIENT
  Age: 68 Year
  Sex: Female
  Weight: 53.97 kg

DRUGS (1)
  1. VENLAFAXINE HCL [Suspect]
     Active Substance: VENLAFAXINE HYDROCHLORIDE
     Dosage: UNK

REACTIONS (5)
  - Withdrawal syndrome [Unknown]
  - Malaise [Unknown]
  - Headache [Unknown]
  - Nausea [Unknown]
  - Paraesthesia [Unknown]
